FAERS Safety Report 25733997 (Version 1)
Quarter: 2025Q3

REPORT INFORMATION
  Report Type: Spontaneous
  Country: US (occurrence: US)
  Receive Date: 20250828
  Receipt Date: 20250828
  Transmission Date: 20251020
  Serious: No
  Sender: Kenvue
  Company Number: US-KENVUE-20250800211

PATIENT
  Sex: Male

DRUGS (23)
  1. TYLENOL [Suspect]
     Active Substance: ACETAMINOPHEN
     Indication: Pain in extremity
     Route: 065
     Dates: start: 2025
  2. TYLENOL [Suspect]
     Active Substance: ACETAMINOPHEN
     Indication: Pain
  3. Oral Treprostinil (TREPROSTINIL DIETHANOLAMINE) [Concomitant]
     Indication: Pulmonary arterial hypertension
     Route: 048
     Dates: start: 2025, end: 2025
  4. Oral Treprostinil (TREPROSTINIL DIETHANOLAMINE) [Concomitant]
     Dosage: 0.875 MILLIGRAM, THRICE A DAY
     Route: 048
     Dates: start: 2025, end: 202506
  5. Oral Treprostinil (TREPROSTINIL DIETHANOLAMINE) [Concomitant]
     Dosage: 1 MILLIGRAM, THRICE A DAY
     Route: 048
     Dates: start: 202506, end: 202506
  6. Oral Treprostinil (TREPROSTINIL DIETHANOLAMINE) [Concomitant]
     Dosage: 1.125 MILLIGRAM, THRICE A DAY
     Route: 048
     Dates: start: 202506, end: 202506
  7. Oral Treprostinil (TREPROSTINIL DIETHANOLAMINE) [Concomitant]
     Dosage: 1.25 MILLIGRAM, THRICE A DAY
     Route: 048
     Dates: start: 202506, end: 2025
  8. Oral Treprostinil (TREPROSTINIL DIETHANOLAMINE) [Concomitant]
     Dosage: 1.75 MILLIGRAM, THRICE A DAY
     Route: 048
     Dates: start: 2025
  9. Oral Treprostinil (TREPROSTINIL DIETHANOLAMINE) [Concomitant]
     Route: 048
     Dates: start: 202504
  10. ORENITRAM [Concomitant]
     Active Substance: TREPROSTINIL
     Indication: Pulmonary arterial hypertension
     Dosage: 0.75 MILLIGRAM, THRICE A DAY ( (2 TABLETS OF 0.125 MG AND 0.25 MG EACH),)
     Route: 048
     Dates: start: 202504
  11. ORENITRAM [Concomitant]
     Active Substance: TREPROSTINIL
     Dosage: 0.25 MILLIGRAM, THRICE A DAY
     Route: 048
     Dates: start: 2025
  12. ORENITRAM [Concomitant]
     Active Substance: TREPROSTINIL
     Dosage: 0.875 MILLIGRAM, THRICE A DAY
     Route: 048
     Dates: start: 2025
  13. ORENITRAM [Concomitant]
     Active Substance: TREPROSTINIL
     Dosage: 1 MILLIGRAM, THRICE A DAY
     Route: 048
     Dates: start: 2025
  14. ORENITRAM [Concomitant]
     Active Substance: TREPROSTINIL
     Dosage: 1.125 MILLIGRAM, THRICE A DAY
     Route: 048
     Dates: start: 2025
  15. ORENITRAM [Concomitant]
     Active Substance: TREPROSTINIL
     Dosage: 1.25 MILLIGRAM, THRICE A DAY
     Route: 048
     Dates: start: 2025
  16. ORENITRAM [Concomitant]
     Active Substance: TREPROSTINIL
     Dosage: 1.75 MILLIGRAM, THRICE A DAY
     Route: 048
     Dates: start: 2025
  17. OPSUMIT [Concomitant]
     Active Substance: MACITENTAN
     Indication: Product used for unknown indication
     Route: 065
     Dates: start: 202505
  18. ADEMPAS [Concomitant]
     Active Substance: RIOCIGUAT
     Indication: Product used for unknown indication
     Route: 065
  19. MACITENTAN [Concomitant]
     Active Substance: MACITENTAN
     Indication: Product used for unknown indication
     Route: 065
     Dates: start: 202505
  20. FUROSEMIDE [Concomitant]
     Active Substance: FUROSEMIDE
     Indication: Fluid retention
     Route: 065
     Dates: start: 2025
  21. POTASSIUM [Concomitant]
     Active Substance: POTASSIUM
     Indication: Fluid retention
     Route: 065
     Dates: start: 2025
  22. IBUPROFEN [Concomitant]
     Active Substance: IBUPROFEN
     Indication: Pain in extremity
     Route: 065
  23. IBUPROFEN [Concomitant]
     Active Substance: IBUPROFEN
     Indication: Pain

REACTIONS (1)
  - Therapeutic product effect incomplete [Unknown]

NARRATIVE: CASE EVENT DATE: 20250101
